FAERS Safety Report 6899268-1 (Version None)
Quarter: 2010Q3

REPORT INFORMATION
  Report Type: 
  Country: None (occurrence: None)
  Receive Date: 20100802
  Receipt Date: 20100720
  Transmission Date: 20110219
  Serious: Yes (Hospitalization)
  Sender: FDA-Public Use
  Company Number: DE-MYLANLABS-2010S1012904

PATIENT
  Age: 39 Year
  Sex: Male

DRUGS (3)
  1. DICLOFENAC [Suspect]
     Indication: ANKYLOSING SPONDYLITIS
     Route: 065
  2. PREDNISOLONE [Suspect]
     Indication: CROHN'S DISEASE
     Route: 065
  3. PREDNISOLONE [Suspect]
     Route: 065

REACTIONS (3)
  - GASTROINTESTINAL DISORDER [None]
  - SKIN STRIAE [None]
  - WEIGHT INCREASED [None]
